FAERS Safety Report 19991701 (Version 2)
Quarter: 2021Q4

REPORT INFORMATION
  Report Type: Spontaneous
  Country: US (occurrence: US)
  Receive Date: 20211025
  Receipt Date: 20211028
  Transmission Date: 20220303
  Serious: Yes (Death, Life-Threatening, Hospitalization, Other)
  Sender: FDA-Public Use
  Company Number: US-DRREDDYS-LIT/USA/21/0142914

PATIENT
  Age: 66 Year
  Sex: Male

DRUGS (3)
  1. DEXAMETHASONE SODIUM PHOSPHATE [Suspect]
     Active Substance: DEXAMETHASONE SODIUM PHOSPHATE
     Indication: COVID-19 pneumonia
     Dosage: 20 MG FOR 5 DAYS
  2. DEXAMETHASONE SODIUM PHOSPHATE [Suspect]
     Active Substance: DEXAMETHASONE SODIUM PHOSPHATE
     Dosage: 20 MG FOR 5 DAYS, FOLLOWED BY 10 MG FOR 5 DAYS
  3. REMDESIVIR [Concomitant]
     Active Substance: REMDESIVIR
     Indication: COVID-19 pneumonia

REACTIONS (8)
  - Disseminated cryptococcosis [Fatal]
  - Hepatic failure [Fatal]
  - Renal failure [Fatal]
  - Fungaemia [Fatal]
  - Acute kidney injury [Fatal]
  - Cryptococcosis [Fatal]
  - Mental status changes [Unknown]
  - Product use in unapproved indication [Unknown]
